FAERS Safety Report 20071274 (Version 1)
Quarter: 2021Q4

REPORT INFORMATION
  Report Type: Spontaneous
  Country: BR (occurrence: BR)
  Receive Date: 20211115
  Receipt Date: 20211115
  Transmission Date: 20220304
  Serious: Yes (Death, Life-Threatening, Other)
  Sender: FDA-Public Use
  Company Number: BR-AMGEN-BRASP2021176201

PATIENT

DRUGS (2)
  1. FILGRASTIM [Suspect]
     Active Substance: FILGRASTIM
     Indication: Prophylaxis
     Dosage: 300 MICROGRAM
     Route: 058
  2. CIPROFLOXACIN [Concomitant]
     Active Substance: CIPROFLOXACIN

REACTIONS (23)
  - Febrile neutropenia [Unknown]
  - Urinary tract infection [Fatal]
  - Death [Fatal]
  - Respiratory tract infection [Fatal]
  - Hormone-refractory prostate cancer [Fatal]
  - Neutropenia [Unknown]
  - Diarrhoea [Unknown]
  - Duodenal ulcer [Unknown]
  - Pneumonia [Unknown]
  - Pyelonephritis [Unknown]
  - Acute kidney injury [Unknown]
  - Renal impairment [Unknown]
  - Pulmonary embolism [Unknown]
  - Sepsis [Unknown]
  - General physical health deterioration [Unknown]
  - Anaemia [Unknown]
  - Fatigue [Unknown]
  - Nausea [Unknown]
  - Haematuria [Unknown]
  - Asthenia [Unknown]
  - Pathological fracture [Unknown]
  - Pleural effusion [Unknown]
  - Aortic aneurysm [Unknown]
